FAERS Safety Report 16082827 (Version 4)
Quarter: 2019Q3

REPORT INFORMATION
  Report Type: Spontaneous
  Country: US (occurrence: US)
  Receive Date: 20190318
  Receipt Date: 20190702
  Transmission Date: 20191004
  Serious: Yes (Other)
  Sender: FDA-Public Use
  Company Number: US-AMGEN INC.-USASP2019039714

PATIENT
  Age: 31 Year
  Sex: Female
  Weight: 65.31 kg

DRUGS (4)
  1. AIMOVIG [Suspect]
     Active Substance: ERENUMAB-AOOE
     Dosage: 70 MILLIGRAM, QMO
     Route: 058
     Dates: end: 201904
  2. AIMOVIG [Suspect]
     Active Substance: ERENUMAB-AOOE
     Dosage: 70 MILLIGRAM, QMO
     Route: 058
  3. AIMOVIG [Suspect]
     Active Substance: ERENUMAB-AOOE
     Indication: MIGRAINE
     Dosage: 70 MILLIGRAM, QMO
     Route: 058
     Dates: start: 201811
  4. AIMOVIG [Suspect]
     Active Substance: ERENUMAB-AOOE
     Dosage: 70 MILLIGRAM, QMO
     Route: 058

REACTIONS (15)
  - Peripheral nerve transposition [Unknown]
  - Pyrexia [Not Recovered/Not Resolved]
  - Joint stiffness [Unknown]
  - Dizziness [Unknown]
  - Pain in extremity [Unknown]
  - Migraine [Not Recovered/Not Resolved]
  - Decreased appetite [Not Recovered/Not Resolved]
  - Oropharyngeal pain [Recovered/Resolved]
  - Fatigue [Unknown]
  - Flushing [Not Recovered/Not Resolved]
  - Nausea [Not Recovered/Not Resolved]
  - Cough [Recovered/Resolved]
  - Abnormal loss of weight [Not Recovered/Not Resolved]
  - Dyspnoea exertional [Unknown]
  - Rash erythematous [Unknown]

NARRATIVE: CASE EVENT DATE: 2019
